FAERS Safety Report 8160129-1 (Version None)
Quarter: 2012Q1

REPORT INFORMATION
  Report Type: 
  Country: None (occurrence: None)
  Receive Date: 20120223
  Receipt Date: 20120213
  Transmission Date: 20120608
  Serious: Yes (Hospitalization, Other)
  Sender: FDA-Public Use
  Company Number: IE-MEDIMMUNE-MEDI-0013920

PATIENT
  Sex: Male
  Weight: 7.5 kg

DRUGS (3)
  1. SYNAGIS [Suspect]
     Route: 030
     Dates: start: 20111018, end: 20111018
  2. SYNAGIS [Suspect]
     Indication: LOW BIRTH WEIGHT BABY
  3. FERROUS SULFATE [Concomitant]

REACTIONS (3)
  - FEEDING DISORDER OF INFANCY OR EARLY CHILDHOOD [None]
  - COUGH [None]
  - BRONCHIOLITIS [None]
